FAERS Safety Report 5882040-9 (Version None)
Quarter: 2008Q3

REPORT INFORMATION
  Report Type: 
  Country: None (occurrence: None)
  Receive Date: 20080912
  Receipt Date: 20080717
  Transmission Date: 20090109
  Serious: No
  Sender: FDA-Public Use
  Company Number: US-ABBOTT-08P-163-0464927-00

PATIENT
  Age: 3 Year
  Sex: Female

DRUGS (2)
  1. HUMIRA [Suspect]
     Indication: POLYARTHRITIS
     Route: 050
  2. HUMIRA [Suspect]
     Indication: JUVENILE ARTHRITIS

REACTIONS (1)
  - EPISTAXIS [None]
